FAERS Safety Report 5166661-7 (Version None)
Quarter: 2006Q4

REPORT INFORMATION
  Report Type: 
  Country: None (occurrence: None)
  Receive Date: 20061129
  Receipt Date: 20061116
  Transmission Date: 20070319
  Serious: Yes (Other)
  Sender: FDA-Public Use
  Company Number: 2006144061

PATIENT
  Sex: Female

DRUGS (2)
  1. PROVERA [Suspect]
     Dosage: ORAL
     Route: 048
     Dates: start: 20060629, end: 20060820
  2. ENDONE (OXYCODONE HYDROCHLORIDE) [Concomitant]

REACTIONS (5)
  - BREAST MASS [None]
  - BREAST TENDERNESS [None]
  - DYSMENORRHOEA [None]
  - MIGRAINE [None]
  - PELVIC PAIN [None]
